FAERS Safety Report 11157149 (Version 1)
Quarter: 2015Q2

REPORT INFORMATION
  Report Type: Spontaneous
  Country: US (occurrence: None)
  Receive Date: 20150601
  Receipt Date: 20150601
  Transmission Date: 20150821
  Serious: Yes (Disabling)
  Sender: FDA-Public Use
  Company Number: None

PATIENT
  Age: 23 Year
  Sex: Female
  Weight: 47.63 kg

DRUGS (2)
  1. ORTHO CYCLEN [Concomitant]
     Active Substance: ETHINYL ESTRADIOL\NORGESTIMATE
  2. NUVARING [Suspect]
     Active Substance: ETHINYL ESTRADIOL\ETONOGESTREL
     Indication: CONTRACEPTION
     Dates: start: 20110914, end: 20120801

REACTIONS (11)
  - Pain [None]
  - Generalised oedema [None]
  - Arthralgia [None]
  - Pruritus [None]
  - Contusion [None]
  - Activities of daily living impaired [None]
  - Pyrexia [None]
  - Skin swelling [None]
  - Depression [None]
  - Myalgia [None]
  - Fatigue [None]
